FAERS Safety Report 4707738-7 (Version None)
Quarter: 2005Q2

REPORT INFORMATION
  Report Type: 
  Country: None (occurrence: None)
  Receive Date: 20050629
  Receipt Date: 20050323
  Transmission Date: 20051028
  Serious: No
  Sender: FDA-Public Use
  Company Number: 05P-163-0294893-00

PATIENT
  Age: 82 Year
  Sex: Female

DRUGS (10)
  1. HUMIRA [Suspect]
     Indication: RHEUMATOID ARTHRITIS
     Dosage: 40 MG, 1 IN 2 WK; 1 IN 1 WK; 1 IN 2 WK SUBCUTANEOUS
     Route: 058
     Dates: start: 20030801, end: 20050101
  2. HUMIRA [Suspect]
     Indication: RHEUMATOID ARTHRITIS
     Dosage: 40 MG, 1 IN 2 WK; 1 IN 1 WK; 1 IN 2 WK SUBCUTANEOUS
     Route: 058
     Dates: start: 20050101, end: 20050301
  3. HUMIRA [Suspect]
     Indication: RHEUMATOID ARTHRITIS
     Dosage: 40 MG, 1 IN 2 WK; 1 IN 1 WK; 1 IN 2 WK SUBCUTANEOUS
     Route: 058
     Dates: start: 20050301
  4. METHOTREXATE [Concomitant]
  5. . [Suspect]
  6. HUMIRA [Suspect]
     Dosage: 40 MG, 1 IN 2 WK, SUBCUTANEOUS
     Route: 058
     Dates: start: 20050301
  7. ... [Concomitant]
  8. ... [Concomitant]
  9. ... [Concomitant]
  10. ... [Concomitant]

REACTIONS (1)
  - RHEUMATOID ARTHRITIS [None]
